FAERS Safety Report 5057359-4 (Version None)
Quarter: 2006Q2

REPORT INFORMATION
  Report Type: 
  Country: None (occurrence: None)
  Receive Date: 20060622
  Receipt Date: 20050926
  Transmission Date: 20061013
  Serious: Yes (Other)
  Sender: FDA-Public Use
  Company Number: US-JNJFOC-20051000228

PATIENT
  Sex: 0

DRUGS (2)
  1. FENTANYL [Suspect]
     Indication: DRUG USE FOR UNKNOWN INDICATION
     Dosage: 75 UG/HR, ORAL
     Route: 048
  2. FENTANYL [Suspect]
     Indication: INTENTIONAL DRUG MISUSE
     Dosage: 75 UG/HR, ORAL
     Route: 048

REACTIONS (1)
  - DRUG ABUSER [None]
